FAERS Safety Report 4540558-5 (Version None)
Quarter: 2004Q4

REPORT INFORMATION
  Report Type: 
  Country: None (occurrence: None)
  Receive Date: 20041228
  Receipt Date: 20041228
  Transmission Date: 20050328
  Serious: Yes (Death)
  Sender: FDA-Public Use
  Company Number: None

PATIENT
  Sex: Male
  Weight: 102.0593 kg

DRUGS (1)
  1. BUPROPION  10 MG [Suspect]
     Dosage: 3 DAY

REACTIONS (3)
  - CARDIAC ARREST [None]
  - CONVULSION [None]
  - DRUG TOXICITY [None]
